FAERS Safety Report 7464150-8 (Version None)
Quarter: 2011Q2

REPORT INFORMATION
  Report Type: 
  Country: None (occurrence: None)
  Receive Date: 20110506
  Receipt Date: 20090930
  Transmission Date: 20111010
  Serious: Yes (Hospitalization, Other)
  Sender: FDA-Public Use
  Company Number: DE-GENENTECH-318106

PATIENT
  Age: 73 Year
  Sex: Male

DRUGS (1)
  1. LUCENTIS [Suspect]
     Indication: AGE-RELATED MACULAR DEGENERATION
     Dosage: UNK
     Route: 031
     Dates: start: 20070404

REACTIONS (5)
  - EYE INFLAMMATION [None]
  - WOLF-HIRSCHHORN SYNDROME [None]
  - HEADACHE [None]
  - EYE PAIN [None]
  - VISUAL ACUITY REDUCED [None]
